FAERS Safety Report 18783921 (Version 1)
Quarter: 2021Q1

REPORT INFORMATION
  Report Type: Spontaneous
  Country: TR (occurrence: TR)
  Receive Date: 20210125
  Receipt Date: 20210125
  Transmission Date: 20210419
  Serious: Yes (Other)
  Sender: FDA-Public Use
  Company Number: TR-AMERICAN REGENT INC-2021000231

PATIENT
  Sex: Male

DRUGS (2)
  1. ESTRADIOL VALERATE INJECTION, USP (0872?05) [Suspect]
     Active Substance: ESTRADIOL VALERATE
     Indication: PRODUCT USE ISSUE
  2. ESTRADIOL VALERATE INJECTION, USP (0872?05) [Suspect]
     Active Substance: ESTRADIOL VALERATE
     Indication: PRODUCT USE IN UNAPPROVED INDICATION
     Dosage: 40 MILLIGRAM

REACTIONS (4)
  - Product use issue [Unknown]
  - Counterfeit product administered [Unknown]
  - Product quality issue [Unknown]
  - Product use in unapproved indication [Unknown]
